FAERS Safety Report 25993314 (Version 1)
Quarter: 2025Q4

REPORT INFORMATION
  Report Type: Report from Study
  Country: EU (occurrence: EU)
  Receive Date: 20251104
  Receipt Date: 20251104
  Transmission Date: 20260117
  Serious: Yes (Life-Threatening, Hospitalization, Disabling, Other)
  Sender: ABBVIE
  Company Number: EU-ABBVIE-6432961

PATIENT
  Age: 73 Year
  Sex: Male

DRUGS (13)
  1. HUMIRA [Suspect]
     Active Substance: ADALIMUMAB
     Indication: Colitis ulcerative
     Route: 058
     Dates: start: 20180713, end: 20190226
  2. HUMIRA [Suspect]
     Active Substance: ADALIMUMAB
     Route: 058
     Dates: start: 20190227, end: 20190512
  3. HUMIRA [Suspect]
     Active Substance: ADALIMUMAB
     Route: 058
     Dates: start: 20190517, end: 20190618
  4. ESOMEPRAZOLE [Concomitant]
     Active Substance: ESOMEPRAZOLE
     Indication: Gastrooesophageal reflux disease
     Route: 048
  5. FIVASA [Concomitant]
     Indication: Colitis ulcerative
     Route: 054
     Dates: start: 20190910
  6. CHOLECALCIFEROL [Concomitant]
     Active Substance: CHOLECALCIFEROL
     Indication: Prophylaxis
     Route: 048
  7. PERINDOPRIL [Concomitant]
     Active Substance: PERINDOPRIL
     Indication: Aortic dissection
     Route: 048
     Dates: start: 20200406
  8. INDAPAMIDE [Concomitant]
     Active Substance: INDAPAMIDE
     Indication: Aortic dissection
     Route: 048
     Dates: start: 20200406
  9. URAPIDIL [Concomitant]
     Active Substance: URAPIDIL
     Indication: Aortic dissection
     Dosage: TIME INTERVAL: 0.33333333 DAYS
     Route: 048
     Dates: start: 20200406
  10. SECTRAL [Concomitant]
     Active Substance: ACEBUTOLOL HYDROCHLORIDE
     Indication: Aortic dissection
     Route: 048
     Dates: start: 20200406
  11. PHLOROGLUCINOL [Concomitant]
     Active Substance: PHLOROGLUCINOL
     Indication: Abdominal pain
     Dosage: TIME INTERVAL: 0.33333333 DAYS
     Route: 048
     Dates: start: 20200406
  12. COLCHICINE [Concomitant]
     Active Substance: COLCHICINE
     Indication: Prophylaxis
     Route: 048
     Dates: start: 20200406
  13. FIVASA [Concomitant]
     Indication: Colitis ulcerative
     Route: 048
     Dates: start: 20230925

REACTIONS (7)
  - Haemorrhage [Recovered/Resolved]
  - Pneumonia staphylococcal [Recovered/Resolved]
  - Pneumonia escherichia [Recovered/Resolved]
  - Renal failure [Recovered/Resolved]
  - Neuromyopathy [Not Recovered/Not Resolved]
  - Unevaluable event [Not Recovered/Not Resolved]
  - Atrial fibrillation [Recovered/Resolved]

NARRATIVE: CASE EVENT DATE: 20250310
